FAERS Safety Report 8238201-7 (Version None)
Quarter: 2012Q1

REPORT INFORMATION
  Report Type: 
  Country: None (occurrence: None)
  Receive Date: 20120327
  Receipt Date: 20120320
  Transmission Date: 20120608
  Serious: Yes (Hospitalization)
  Sender: FDA-Public Use
  Company Number: PHHY2012FR025319

PATIENT
  Age: 49 Year
  Sex: Female

DRUGS (6)
  1. TROSPIUM CHLORIDE [Concomitant]
  2. BACLOFEN [Concomitant]
  3. METEOXANE [Concomitant]
  4. BETA BLOCKING AGENTS [Concomitant]
  5. GILENYA [Suspect]
     Indication: RELAPSING-REMITTING MULTIPLE SCLEROSIS
     Dosage: 0.5 MG, QD
     Route: 048
     Dates: start: 20120306
  6. PAROXETINE HYDROCHLORIDE [Concomitant]

REACTIONS (10)
  - INFLAMMATION [None]
  - LOSS OF CONSCIOUSNESS [None]
  - C-REACTIVE PROTEIN INCREASED [None]
  - EPILEPSY [None]
  - PROCALCITONIN INCREASED [None]
  - EJECTION FRACTION DECREASED [None]
  - TROPONIN INCREASED [None]
  - CARDIAC FAILURE ACUTE [None]
  - CARDIAC OUTPUT DECREASED [None]
  - MYOCARDITIS [None]
